FAERS Safety Report 8810273 (Version 2)
Quarter: 2013Q4

REPORT INFORMATION
  Report Type: Spontaneous
  Country: BR (occurrence: BR)
  Receive Date: 20120926
  Receipt Date: 20131031
  Transmission Date: 20140711
  Serious: Yes (Hospitalization)
  Sender: FDA-Public Use
  Company Number: BR-009507513-1203BRA00057

PATIENT
  Age: 59 Year
  Sex: Male
  Weight: 80 kg

DRUGS (4)
  1. VYTORIN [Suspect]
     Indication: BLOOD CHOLESTEROL INCREASED
     Dosage: 10-10
     Route: 048
     Dates: start: 2011
  2. NEBIDO [Suspect]
     Indication: ANDROGEN DEFICIENCY
     Dosage: UNK UNK, QM3
     Dates: start: 2007
  3. VASOTEC [Concomitant]
     Indication: HYPERTENSION
     Dosage: 10 MG, QD
     Route: 048
     Dates: start: 2011
  4. CONDROFLEX [Concomitant]
     Indication: OSTEOARTHRITIS

REACTIONS (21)
  - Dengue fever [Unknown]
  - Dysgeusia [Unknown]
  - Feeling hot [Unknown]
  - Chest pain [Recovered/Resolved]
  - Cough [Recovered/Resolved]
  - Dyspnoea [Recovered/Resolved]
  - Dyspnoea [Recovered/Resolved]
  - Oral discomfort [Recovered/Resolved]
  - Pruritus [Recovered/Resolved]
  - Eye irritation [Recovered/Resolved]
  - Oral discomfort [Recovered/Resolved]
  - Cold sweat [Recovered/Resolved]
  - Erythema [Recovered/Resolved]
  - Asthenia [Recovered/Resolved]
  - Nasal discomfort [Recovered/Resolved]
  - Dysgeusia [Unknown]
  - Somnolence [Unknown]
  - Asthenia [Recovered/Resolved]
  - Thyroid cyst [Unknown]
  - Cholelithiasis [Unknown]
  - Blood testosterone decreased [Unknown]
